FAERS Safety Report 7291294-6 (Version None)
Quarter: 2011Q1

REPORT INFORMATION
  Report Type: 
  Country: None (occurrence: None)
  Receive Date: 20110214
  Receipt Date: 20110211
  Transmission Date: 20110831
  Serious: Yes (Hospitalization)
  Sender: FDA-Public Use
  Company Number: A0731194A

PATIENT
  Age: 45 Year
  Sex: Male
  Weight: 86.4 kg

DRUGS (13)
  1. NASONEX [Concomitant]
  2. ZETIA [Concomitant]
  3. ZYRTEC [Concomitant]
  4. TYLOX [Concomitant]
  5. TICLID [Concomitant]
  6. AVANDIA [Suspect]
     Dosage: 4MG TWICE PER DAY
     Route: 048
     Dates: start: 20050701, end: 20080801
  7. AVANDAMET [Suspect]
     Dosage: 1TAB TWICE PER DAY
     Route: 048
     Dates: start: 20050201, end: 20050701
  8. LOMOTIL [Concomitant]
  9. WELLBUTRIN [Concomitant]
  10. INSULIN [Concomitant]
     Dates: start: 20050101
  11. KALETRA [Concomitant]
     Dates: start: 20060101
  12. TRICOR [Concomitant]
  13. CRESTOR [Concomitant]

REACTIONS (3)
  - MYOCARDIAL INFARCTION [None]
  - PAIN [None]
  - CARDIAC FAILURE CONGESTIVE [None]
